FAERS Safety Report 23938591 (Version 1)
Quarter: 2024Q2

REPORT INFORMATION
  Report Type: Spontaneous
  Country: RU (occurrence: None)
  Receive Date: 20240604
  Receipt Date: 20240604
  Transmission Date: 20240717
  Serious: Yes (Other)
  Sender: FDA-Public Use
  Company Number: 2024A128695

PATIENT
  Age: 60 Year
  Sex: Female
  Weight: 66 kg

DRUGS (5)
  1. DAPAGLIFLOZIN [Suspect]
     Active Substance: DAPAGLIFLOZIN
     Indication: Hyperglycaemia
     Route: 048
  2. FULVESTRANT [Concomitant]
     Active Substance: FULVESTRANT
     Indication: Breast cancer female
     Route: 030
     Dates: start: 202210
  3. PIOGLITAZONE [Concomitant]
     Active Substance: PIOGLITAZONE
  4. METFORMIN [Concomitant]
     Active Substance: METFORMIN HYDROCHLORIDE
  5. ALOGLIPTIN [Concomitant]
     Active Substance: ALOGLIPTIN

REACTIONS (5)
  - Ketoacidosis [Unknown]
  - Ketonuria [Unknown]
  - Pruritus [Unknown]
  - Cholestasis [Unknown]
  - Off label use [Unknown]
